FAERS Safety Report 6046406-9 (Version None)
Quarter: 2009Q1

REPORT INFORMATION
  Report Type: 
  Country: None (occurrence: None)
  Receive Date: 20090122
  Receipt Date: 20090112
  Transmission Date: 20090719
  Serious: Yes (Hospitalization)
  Sender: FDA-Public Use
  Company Number: IT-BAYER-200910952GPV

PATIENT
  Age: 81 Year
  Sex: Female

DRUGS (4)
  1. CARDIOASPIRIN (ACETYLSALYCILC ACID) [Suspect]
     Indication: THROMBOSIS PROPHYLAXIS
     Dosage: TOTAL DAILY DOSE: 100 MG
     Route: 048
     Dates: start: 20081020, end: 20081025
  2. TEGRETOL [Suspect]
     Indication: EPILEPSY
     Route: 048
     Dates: start: 20081020, end: 20081124
  3. URBASON (METHYLPREDNISOLONE SODIUM HEMISUCCINATE) [Concomitant]
     Indication: SKIN REACTION
     Dosage: TOTAL DAILY DOSE: 40 MG
     Route: 042
     Dates: start: 20081016, end: 20081028
  4. DELTA-CORTEF [Concomitant]
     Indication: POLYMYALGIA RHEUMATICA
     Dosage: TOTAL DAILY DOSE: 25 MG
     Route: 048
     Dates: start: 20080801, end: 20081028

REACTIONS (6)
  - ERYTHEMA [None]
  - HYPERPYREXIA [None]
  - PRURITUS [None]
  - SKIN EROSION [None]
  - SKIN EXFOLIATION [None]
  - TOXIC EPIDERMAL NECROLYSIS [None]
